FAERS Safety Report 5215098-0 (Version None)
Quarter: 2006Q4

REPORT INFORMATION
  Report Type: 
  Country: None (occurrence: None)
  Receive Date: 20061107
  Receipt Date: 20060714
  Transmission Date: 20070319
  Serious: No
  Sender: FDA-Public Use
  Company Number: 200614590BWH

PATIENT
  Age: 65 Year
  Sex: Male

DRUGS (10)
  1. LEVITRA [Suspect]
     Indication: ERECTILE DYSFUNCTION
     Dosage: SEE IMAGE
     Route: 048
     Dates: start: 20060701
  2. LEVITRA [Suspect]
     Indication: ERECTILE DYSFUNCTION
     Dosage: SEE IMAGE
     Route: 048
     Dates: start: 20060707
  3. LEVITRA [Suspect]
     Indication: ERECTILE DYSFUNCTION
     Dosage: SEE IMAGE
     Route: 048
     Dates: start: 20060712
  4. LUVOX [Concomitant]
  5. DYAZIDE [Concomitant]
  6. NEXIUM [Concomitant]
  7. COREG [Concomitant]
  8. UROXATRAL [Concomitant]
  9. VIAGRA [Concomitant]
  10. CIALIS [Concomitant]

REACTIONS (1)
  - URINARY INCONTINENCE [None]
